FAERS Safety Report 8206967-8 (Version None)
Quarter: 2012Q1

REPORT INFORMATION
  Report Type: 
  Country: None (occurrence: None)
  Receive Date: 20120312
  Receipt Date: 20110728
  Transmission Date: 20120608
  Serious: Yes (Hospitalization, Other)
  Sender: FDA-Public Use
  Company Number: GB-023382

PATIENT
  Age: 80 Year
  Sex: Male

DRUGS (5)
  1. CHLORAMBUCIL [Suspect]
     Indication: CHRONIC LYMPHOCYTIC LEUKAEMIA
     Dosage: 18 MG MONTHLY, ORAL
     Route: 048
     Dates: start: 20100913
  2. ALLOPURINOL [Concomitant]
  3. ACYCLOVIR [Concomitant]
  4. RITUXIMAB [Suspect]
     Indication: CHRONIC LYMPHOCYTIC LEUKAEMIA
     Dosage: 700 MG INJECTION, INTRAVENOUS (NOT OTHERWISE SPECIFIED)
     Route: 042
     Dates: start: 20100913
  5. TRIMETHOPRIN [Concomitant]

REACTIONS (4)
  - NEUTROPENIC SEPSIS [None]
  - DIZZINESS [None]
  - DYSPNOEA [None]
  - NAUSEA [None]
